FAERS Safety Report 7536790-9 (Version None)
Quarter: 2011Q2

REPORT INFORMATION
  Report Type: 
  Country: None (occurrence: None)
  Receive Date: 20110609
  Receipt Date: 20110531
  Transmission Date: 20111010
  Serious: Yes (Hospitalization, Other)
  Sender: FDA-Public Use
  Company Number: CA-ROCHE-778071

PATIENT
  Sex: Female

DRUGS (1)
  1. TRASTUZUMAB [Suspect]
     Indication: GASTRIC CANCER
     Dosage: FORM: INFUSION
     Route: 042
     Dates: start: 20100811, end: 20110405

REACTIONS (4)
  - COLOSTOMY [None]
  - NAUSEA [None]
  - VOMITING [None]
  - NEOPLASM MALIGNANT [None]
